FAERS Safety Report 17150436 (Version 1)
Quarter: 2019Q4

REPORT INFORMATION
  Report Type: Spontaneous
  Country: US (occurrence: US)
  Receive Date: 20191213
  Receipt Date: 20191213
  Transmission Date: 20200122
  Serious: No
  Sender: FDA-Public Use
  Company Number: US-UCBSA-2015035993

PATIENT
  Age: 29 Year
  Sex: Female

DRUGS (3)
  1. VIMPAT [Suspect]
     Active Substance: LACOSAMIDE
     Dosage: 900 MG A DAY
  2. VIMPAT [Suspect]
     Active Substance: LACOSAMIDE
     Indication: EPILEPSY
     Dosage: 200 MG, 3X/DAY (TID)
     Route: 048
     Dates: start: 200906
  3. VIMPAT [Suspect]
     Active Substance: LACOSAMIDE
     Dosage: TOOK MORE VIMPAT THAN I WAS SUPPOSED
     Route: 048

REACTIONS (10)
  - Balance disorder [Unknown]
  - Petit mal epilepsy [Unknown]
  - Inappropriate schedule of product administration [Unknown]
  - Stress [Unknown]
  - Malaise [Unknown]
  - Feeling abnormal [Recovered/Resolved]
  - Diplopia [Unknown]
  - Seizure [Unknown]
  - Intentional product use issue [Unknown]
  - Headache [Unknown]

NARRATIVE: CASE EVENT DATE: 200906
